FAERS Safety Report 15731685 (Version 2)
Quarter: 2018Q4

REPORT INFORMATION
  Report Type: Spontaneous
  Country: JP (occurrence: JP)
  Receive Date: 20181217
  Receipt Date: 20181220
  Transmission Date: 20190205
  Serious: Yes (Other)
  Sender: FDA-Public Use
  Company Number: JP-CELGENEUS-JPN-20181204904

PATIENT
  Age: 64 Year
  Sex: Female

DRUGS (18)
  1. REVLIMID [Suspect]
     Active Substance: LENALIDOMIDE
     Indication: PLASMA CELL MYELOMA
     Dosage: 25 MILLIGRAM
     Route: 048
     Dates: start: 201504
  2. CYCLOPHOSPHAMIDE. [Concomitant]
     Active Substance: CYCLOPHOSPHAMIDE
     Indication: PLASMA CELL MYELOMA
     Dosage: 750 MILLIGRAM/SQ. METER
     Route: 065
     Dates: start: 2016
  3. CYCLOPHOSPHAMIDE. [Concomitant]
     Active Substance: CYCLOPHOSPHAMIDE
     Dosage: 2000 MILLIGRAM/SQ.METER
     Route: 065
  4. PREDNISOLONE. [Concomitant]
     Active Substance: PREDNISOLONE
     Indication: PLASMA CELL MYELOMA
     Dosage: 100 MILLIGRAM
     Route: 065
     Dates: start: 2016
  5. PLERIXAFOR [Concomitant]
     Active Substance: PLERIXAFOR
     Indication: STEM CELL TRANSPLANT
     Dosage: UNKNOWN
     Route: 065
  6. POMALYST [Suspect]
     Active Substance: POMALIDOMIDE
     Indication: PLASMA CELL MYELOMA
     Dosage: UNKNOWN
     Route: 048
     Dates: start: 2016, end: 2016
  7. DEXAMETHASONE. [Suspect]
     Active Substance: DEXAMETHASONE
     Dosage: 20 MILLIGRAM
     Route: 048
  8. GRANULOCYTE COLONY STIMULATING FACTOR [Concomitant]
     Active Substance: GRANULOCYTE COLONY-STIMULATING FACTOR NOS
     Indication: PERIPHERAL BLOOD STEM CELL APHERESIS
     Dosage: UNKNOWN
     Route: 065
     Dates: start: 2014, end: 2014
  9. GRANULOCYTE COLONY STIMULATING FACTOR [Concomitant]
     Active Substance: GRANULOCYTE COLONY-STIMULATING FACTOR NOS
     Dosage: UNKNOWN
     Route: 065
  10. VINCRISTINE [Concomitant]
     Active Substance: VINCRISTINE
     Indication: PLASMA CELL MYELOMA
     Dosage: 1.4 MILLIGRAM/SQ. METER
     Route: 065
     Dates: start: 2016
  11. REVLIMID [Suspect]
     Active Substance: LENALIDOMIDE
     Dosage: 25 MILLIGRAM
     Route: 048
  12. CARFILZOMIB [Concomitant]
     Active Substance: CARFILZOMIB
     Indication: PLASMA CELL MYELOMA
     Dosage: 40 MILLIGRAM
     Route: 065
  13. REVLIMID [Suspect]
     Active Substance: LENALIDOMIDE
     Dosage: 10 MILLIGRAM
     Route: 048
     Dates: end: 2016
  14. REVLIMID [Suspect]
     Active Substance: LENALIDOMIDE
     Dosage: 10 MILLIGRAM
     Route: 048
  15. MELPHALAN. [Concomitant]
     Active Substance: MELPHALAN
     Indication: STEM CELL TRANSPLANT
     Dosage: 100 MILLIGRAM/SQ.METER
     Route: 065
  16. DEXAMETHASONE. [Suspect]
     Active Substance: DEXAMETHASONE
     Indication: PLASMA CELL MYELOMA
     Dosage: 20 MILLIGRAM/KILOGRAM
     Route: 048
     Dates: start: 2014, end: 2014
  17. CYCLOPHOSPHAMIDE. [Concomitant]
     Active Substance: CYCLOPHOSPHAMIDE
     Indication: PERIPHERAL BLOOD STEM CELL APHERESIS
     Dosage: 2000 MILLIGRAM/SQ.METER
     Route: 065
     Dates: start: 201407, end: 201407
  18. DOXORUBICIN [Concomitant]
     Active Substance: DOXORUBICIN
     Indication: PLASMA CELL MYELOMA
     Dosage: 50 MILLIGRAM/SQ. METER
     Route: 065
     Dates: start: 2016

REACTIONS (3)
  - Cytopenia [Unknown]
  - Myelodysplastic syndrome [Unknown]
  - Plasmacytoma [Unknown]

NARRATIVE: CASE EVENT DATE: 2016
